FAERS Safety Report 7915381-1 (Version None)
Quarter: 2011Q4

REPORT INFORMATION
  Report Type: 
  Country: None (occurrence: None)
  Receive Date: 20111115
  Receipt Date: 20111108
  Transmission Date: 20120403
  Serious: Yes (Other)
  Sender: FDA-Public Use
  Company Number: PHEH2011US009011

PATIENT
  Sex: Female

DRUGS (13)
  1. LEVOTHYROXINE SODIUM [Concomitant]
     Dosage: UNK UKN, UNK
  2. GILENYA [Suspect]
     Indication: MULTIPLE SCLEROSIS
     Dosage: 0.5 MG, QD
     Route: 048
     Dates: start: 20111108
  3. BACLOFEN [Concomitant]
     Dosage: UNK UKN, UNK
  4. GABAPENTIN [Concomitant]
     Dosage: UNK UKN, PRN
  5. PREMPRO [Concomitant]
     Dosage: UNK UKN, UNK
  6. AMBIEN [Concomitant]
     Dosage: UNK UKN, PRN
  7. DAPTOMYCIN [Concomitant]
     Dosage: UNK UKN, PRN
  8. ASACOL [Concomitant]
     Dosage: UNK UKN, UNK
  9. DONEPEZIL HCL [Concomitant]
     Dosage: UNK UKN, UNK
  10. LORAZEPAM [Concomitant]
     Dosage: UNK UKN, UNK
  11. TRILIPIX [Concomitant]
     Dosage: UNK UKN, UNK
  12. PROMETHAZINE [Concomitant]
     Dosage: UNK UKN, PRN
  13. SOLU-MEDROL [Concomitant]
     Dosage: UNK UKN, PRN

REACTIONS (4)
  - FATIGUE [None]
  - NAUSEA [None]
  - BLOOD PRESSURE DECREASED [None]
  - ASTHENIA [None]
